FAERS Safety Report 15041025 (Version 2)
Quarter: 2019Q1

REPORT INFORMATION
  Report Type: Spontaneous
  Country: IT (occurrence: IT)
  Receive Date: 20180621
  Receipt Date: 20190105
  Transmission Date: 20190417
  Serious: Yes (Hospitalization)
  Sender: FDA-Public Use
  Company Number: IT-SUN PHARMACEUTICAL INDUSTRIES LTD-2018RR-176243

PATIENT

DRUGS (2)
  1. CITALOPRAM [Suspect]
     Active Substance: CITALOPRAM HYDROBROMIDE
     Indication: DEPRESSION
     Dosage: ()
     Route: 065
  2. TICLOPIDINA DOC GENERICI 250 MG COMPRESSE [Suspect]
     Active Substance: TICLOPIDINE
     Indication: PROPHYLAXIS
     Dosage: 250 MILLIGRAM
     Route: 048
     Dates: start: 20150119, end: 20170224

REACTIONS (1)
  - Cerebral haemorrhage [Unknown]

NARRATIVE: CASE EVENT DATE: 20170224
